FAERS Safety Report 4669118-2 (Version None)
Quarter: 2005Q2

REPORT INFORMATION
  Report Type: 
  Country: None (occurrence: None)
  Receive Date: 20050519
  Receipt Date: 20050509
  Transmission Date: 20051028
  Serious: Yes (Hospitalization)
  Sender: FDA-Public Use
  Company Number: 11051

PATIENT
  Age: 76 Year
  Sex: Male

DRUGS (10)
  1. CARBOPLATIN [Suspect]
     Indication: NEOPLASM MALIGNANT
     Dosage: 830 MG
     Route: 042
     Dates: start: 20050225, end: 20050225
  2. ETOPOSIDE [Suspect]
     Indication: NEOPLASM MALIGNANT
     Dosage: 120 MG/ 180 MG/ 120 MG
     Route: 042
     Dates: start: 20050225, end: 20050225
  3. ETOPOSIDE [Suspect]
     Indication: NEOPLASM MALIGNANT
     Dosage: 120 MG/ 180 MG/ 120 MG
     Route: 042
     Dates: start: 20050225, end: 20050225
  4. ETOPOSIDE [Suspect]
     Indication: NEOPLASM MALIGNANT
     Dosage: 120 MG/ 180 MG/ 120 MG
     Route: 042
     Dates: start: 20050227, end: 20050227
  5. MACROGOL [Concomitant]
  6. SIMVASTATIN [Concomitant]
  7. LANSOPRAZOL [Concomitant]
  8. ACETYLSALICYLIC ACIC [Concomitant]
  9. DOMEPERIDONE [Concomitant]
  10. LATANOPROST [Concomitant]

REACTIONS (6)
  - CHILLS [None]
  - CONFUSIONAL STATE [None]
  - HYPOTENSION [None]
  - LETHARGY [None]
  - NEUTROPENIA [None]
  - STOMATITIS [None]
